FAERS Safety Report 5170097-2 (Version None)
Quarter: 2006Q4

REPORT INFORMATION
  Report Type: 
  Country: None (occurrence: None)
  Receive Date: 20061201
  Receipt Date: 20061115
  Transmission Date: 20070319
  Serious: Yes (Other)
  Sender: FDA-Public Use
  Company Number: US-2006-035605

PATIENT
  Age: 55 Year
  Sex: Female

DRUGS (1)
  1. BETASERON(INTERFERON BETA - 1B) INJECTION, 240UG [Suspect]
     Indication: MULTIPLE SCLEROSIS
     Dosage: 8 MIU, EVERY 2D, SUBCUTANEOUS
     Route: 058
     Dates: start: 20060920

REACTIONS (2)
  - HEPATOMEGALY [None]
  - PULMONARY CONGESTION [None]
